FAERS Safety Report 19676463 (Version 1)
Quarter: 2021Q3

REPORT INFORMATION
  Report Type: Spontaneous
  Country: US (occurrence: US)
  Receive Date: 20210809
  Receipt Date: 20210809
  Transmission Date: 20211014
  Serious: No
  Sender: FDA-Public Use
  Company Number: US-BIOGEN-2021BI01037393

PATIENT
  Sex: Male

DRUGS (8)
  1. LAMOTRIGINE. [Concomitant]
     Active Substance: LAMOTRIGINE
     Route: 065
  2. ANASTROZOLE. [Concomitant]
     Active Substance: ANASTROZOLE
     Route: 065
  3. NAPROXEN SODIUM. [Concomitant]
     Active Substance: NAPROXEN SODIUM
     Route: 065
  4. SERTRALINE HCL [Concomitant]
     Active Substance: SERTRALINE HYDROCHLORIDE
     Route: 065
  5. TRAZODONE HYDROCHLORIDE. [Concomitant]
     Active Substance: TRAZODONE HYDROCHLORIDE
     Route: 065
  6. TECFIDERA [Suspect]
     Active Substance: DIMETHYL FUMARATE
     Indication: MULTIPLE SCLEROSIS
     Route: 048
  7. BACLOFEN. [Concomitant]
     Active Substance: BACLOFEN
     Route: 065
  8. SUMATRIPTAN. [Concomitant]
     Active Substance: SUMATRIPTAN
     Route: 065

REACTIONS (1)
  - Gastric disorder [Unknown]
